FAERS Safety Report 18279210 (Version 1)
Quarter: 2020Q3

REPORT INFORMATION
  Report Type: Spontaneous
  Country: FR (occurrence: FR)
  Receive Date: 20200917
  Receipt Date: 20200917
  Transmission Date: 20201103
  Serious: Yes (Hospitalization)
  Sender: FDA-Public Use
  Company Number: NVSC2020FR252194

PATIENT
  Age: 48 Year
  Sex: Female
  Weight: 98 kg

DRUGS (4)
  1. ESCITALOPRAM [Suspect]
     Active Substance: ESCITALOPRAM OXALATE
     Indication: POISONING DELIBERATE
     Dosage: 1100 MG, QD
     Route: 048
     Dates: start: 20200811, end: 20200811
  2. TRAMADOL HYDROCHLORIDE. [Suspect]
     Active Substance: TRAMADOL HYDROCHLORIDE
     Indication: POISONING DELIBERATE
     Dosage: 4000 MG, QD
     Route: 048
     Dates: start: 20200811, end: 20200811
  3. ALPRAZOLAM. [Suspect]
     Active Substance: ALPRAZOLAM
     Indication: POISONING DELIBERATE
     Dosage: 41 DF, QD
     Route: 048
     Dates: start: 20200811, end: 20200811
  4. STILNOX [Suspect]
     Active Substance: ZOLPIDEM TARTRATE
     Indication: POISONING DELIBERATE
     Dosage: 250 MG, QD (COMPRIM? PELLICUL? S?CABLE)
     Route: 048
     Dates: start: 20200811, end: 20200811

REACTIONS (5)
  - Vomiting [Recovered/Resolved]
  - Oxygen saturation decreased [Recovered/Resolved]
  - Nausea [Recovered/Resolved]
  - Somnolence [Recovered/Resolved]
  - Hypothermia [Recovered/Resolved]

NARRATIVE: CASE EVENT DATE: 20200812
